FAERS Safety Report 10230423 (Version 2)
Quarter: 2014Q2

REPORT INFORMATION
  Report Type: Spontaneous
  Country: US (occurrence: US)
  Receive Date: 20140611
  Receipt Date: 20140611
  Transmission Date: 20141212
  Serious: No
  Sender: FDA-Public Use
  Company Number: US-INCYTE CORPORATION-2014IN000650

PATIENT
  Age: 63 Year
  Sex: Female

DRUGS (4)
  1. JAKAFI [Suspect]
     Indication: MYELOFIBROSIS
     Dosage: 20 MG, BID
     Route: 048
     Dates: start: 20130502
  2. MULTIVITAMIN                       /00097801/ [Concomitant]
  3. ZANTAC [Concomitant]
  4. METOPROLOL [Concomitant]

REACTIONS (2)
  - Incorrect dose administered [Unknown]
  - Weight increased [Unknown]
